FAERS Safety Report 16470427 (Version 1)
Quarter: 2019Q2

REPORT INFORMATION
  Report Type: Spontaneous
  Country: PK (occurrence: PK)
  Receive Date: 20190624
  Receipt Date: 20190624
  Transmission Date: 20190711
  Serious: Yes (Hospitalization, Other)
  Sender: FDA-Public Use
  Company Number: PK-SA-2019SA161441

PATIENT
  Age: 44 Year
  Sex: Male

DRUGS (5)
  1. LOWPLAT [Concomitant]
     Indication: PLATELET AGGREGATION ABNORMAL
     Dosage: 70 MG, QD
     Route: 048
     Dates: start: 20170615
  2. LANTUS SOLOSTAR [Suspect]
     Active Substance: INSULIN GLARGINE
     Indication: DIABETES MELLITUS
     Dosage: 50 IU, HS
     Route: 058
     Dates: start: 20140613, end: 20190605
  3. SITAGLIPTIN/METFORMIN [Suspect]
     Active Substance: METFORMIN\SITAGLIPTIN
     Indication: HYPERGLYCAEMIA
     Dosage: 50/500MG, QD
     Route: 048
     Dates: start: 20140513, end: 20170615
  4. CONCOR [Concomitant]
     Active Substance: BISOPROLOL FUMARATE
     Indication: HYPERTENSION
     Dosage: 2.5 MG, BID
     Route: 048
     Dates: start: 20170615
  5. GLUCOPHAGE [Suspect]
     Active Substance: METFORMIN HYDROCHLORIDE
     Indication: HYPERGLYCAEMIA
     Dosage: 850 MG, QD
     Route: 048
     Dates: start: 20170615

REACTIONS (3)
  - Hyperglycaemia [Recovering/Resolving]
  - Diabetes mellitus inadequate control [Unknown]
  - Myocardial infarction [Recovered/Resolved]

NARRATIVE: CASE EVENT DATE: 20170613
